FAERS Safety Report 4973867-6 (Version None)
Quarter: 2006Q2

REPORT INFORMATION
  Report Type: 
  Country: None (occurrence: None)
  Receive Date: 20060417
  Receipt Date: 20060404
  Transmission Date: 20061013
  Serious: Yes (Other)
  Sender: FDA-Public Use
  Company Number: GB-JNJFOC-20060101888

PATIENT
  Sex: Male

DRUGS (4)
  1. REOPRO [Suspect]
     Indication: DRUG USE FOR UNKNOWN INDICATION
     Route: 042
  2. ACETYLSALICYLIC ACID SRT [Concomitant]
  3. CLOPIDOGREL [Concomitant]
  4. RAMIPRIL [Concomitant]

REACTIONS (2)
  - ELECTROCARDIOGRAM ST SEGMENT ELEVATION [None]
  - THROMBOCYTOPENIA [None]
